FAERS Safety Report 6914050-4 (Version None)
Quarter: 2010Q3

REPORT INFORMATION
  Report Type: 
  Country: None (occurrence: None)
  Receive Date: 20100809
  Receipt Date: 20100730
  Transmission Date: 20110219
  Serious: Yes (Death, Hospitalization)
  Sender: FDA-Public Use
  Company Number: FR-BRISTOL-MYERS SQUIBB COMPANY-15219884

PATIENT
  Age: 74 Year
  Sex: Male

DRUGS (9)
  1. APROVEL [Suspect]
     Route: 048
     Dates: start: 20100704
  2. PRAVIGARD PAC (COPACKAGED) [Suspect]
     Dosage: 1 DF = 1 TAB
     Route: 048
     Dates: end: 20100703
  3. CELEBREX [Suspect]
     Route: 048
     Dates: end: 20100704
  4. PLAVIX [Suspect]
     Dosage: TABLET
     Route: 048
     Dates: end: 20100704
  5. TRIVASTAL [Concomitant]
     Dosage: 2 DF = 2TABS
  6. MODOPAR [Concomitant]
  7. LACTULOSE [Concomitant]
  8. ATARAX [Concomitant]
  9. LORAZEPAM [Concomitant]

REACTIONS (6)
  - DEATH [None]
  - DIARRHOEA [None]
  - GASTROINTESTINAL ULCER [None]
  - GASTROOESOPHAGITIS [None]
  - RENAL FAILURE ACUTE [None]
  - VOMITING [None]
